FAERS Safety Report 16861214 (Version 1)
Quarter: 2019Q3

REPORT INFORMATION
  Report Type: Spontaneous
  Country: DE (occurrence: DE)
  Receive Date: 20190927
  Receipt Date: 20190927
  Transmission Date: 20191005
  Serious: Yes (Life-Threatening, Hospitalization, Other)
  Sender: FDA-Public Use
  Company Number: DE-TEVA-2019-DE-1113432

PATIENT
  Age: 79 Year
  Sex: Female

DRUGS (8)
  1. L-THYROXIN 150 [Concomitant]
     Dosage: 150 MICROGRAM DAILY; 1-0-0
  2. DEKRISTOL 20000 [Concomitant]
     Active Substance: CHOLECALCIFEROL
     Dosage: 1X FRIDAY; 1 DF PER 1 WEEK
  3. FEBUXOSTAT 80MG [Concomitant]
     Dosage: 40 MILLIGRAM DAILY; 1/-0-0
  4. BISOPROLOL 5 [Concomitant]
     Active Substance: BISOPROLOL
     Dosage: 10 MILLIGRAM DAILY; 1-0-1
  5. HCT 12,5 MG [Concomitant]
     Dosage: 12.5 MILLIGRAM DAILY; 1-0-0
  6. ASS 100 [Concomitant]
     Active Substance: ASPIRIN
     Dosage: 100 MILLIGRAM DAILY; 1-0-0
  7. METFORMIN [Suspect]
     Active Substance: METFORMIN HYDROCHLORIDE
     Indication: TYPE 2 DIABETES MELLITUS
     Dosage: 3000 MILLIGRAM DAILY; 1-1-1
     Route: 048
  8. SEVIKAR 20/5MG [Concomitant]
     Dosage: 1 DOSAGE FORMS DAILY; 0-0-1/2;  20/5MG

REACTIONS (2)
  - Lactic acidosis [Not Recovered/Not Resolved]
  - Acute kidney injury [Not Recovered/Not Resolved]

NARRATIVE: CASE EVENT DATE: 20190822
